FAERS Safety Report 12207708 (Version 1)
Quarter: 2016Q1

REPORT INFORMATION
  Report Type: Spontaneous
  Country: ES (occurrence: ES)
  Receive Date: 20160324
  Receipt Date: 20160324
  Transmission Date: 20160526
  Serious: Yes (Death)
  Sender: FDA-Public Use
  Company Number: ES-CELGENE-ESP-2016032740

PATIENT
  Age: 79 Year

DRUGS (1)
  1. REVLIMID [Suspect]
     Active Substance: LENALIDOMIDE
     Indication: MANTLE CELL LYMPHOMA REFRACTORY
     Dosage: 20 MILLIGRAM
     Route: 048
     Dates: start: 20160120, end: 20160217

REACTIONS (1)
  - Mantle cell lymphoma refractory [Fatal]

NARRATIVE: CASE EVENT DATE: 201603
